FAERS Safety Report 24804463 (Version 5)
Quarter: 2025Q2

REPORT INFORMATION
  Report Type: Spontaneous
  Country: JP (occurrence: JP)
  Receive Date: 20250103
  Receipt Date: 20250401
  Transmission Date: 20250717
  Serious: Yes (Other)
  Sender: VERICEL
  Company Number: JP-VERICEL-JP-VCEL-24-000490

PATIENT
  Age: 41 Year
  Sex: Male
  Weight: 48 kg

DRUGS (5)
  1. BROMELAINS [Suspect]
     Active Substance: BROMELAINS
     Indication: Thermal burn
     Route: 061
     Dates: start: 20241127, end: 20241127
  2. BROMELAINS [Suspect]
     Active Substance: BROMELAINS
     Route: 061
     Dates: start: 20241128, end: 20241128
  3. FIBLAST [TRAFERMIN] [Concomitant]
     Indication: Product used for unknown indication
     Route: 061
     Dates: start: 20241127
  4. NOREPINEPHRINE BITARTRATE [Concomitant]
     Active Substance: NOREPINEPHRINE BITARTRATE
     Indication: Blood pressure decreased
     Route: 042
  5. DIPRIVAN [Concomitant]
     Active Substance: PROPOFOL
     Indication: Thermal burn
     Route: 042

REACTIONS (1)
  - Application site haemorrhage [Recovering/Resolving]

NARRATIVE: CASE EVENT DATE: 20241128
